FAERS Safety Report 5091139-9 (Version None)
Quarter: 2006Q3

REPORT INFORMATION
  Report Type: 
  Country: None (occurrence: None)
  Receive Date: 20060727
  Receipt Date: 20060403
  Transmission Date: 20061208
  Serious: Yes (Other)
  Sender: FDA-Public Use
  Company Number: 2006047416

PATIENT
  Age: 79 Year
  Sex: Female

DRUGS (9)
  1. LYRICA [Suspect]
     Indication: ARTHRALGIA
     Dosage: 50 MG (50 MG,1 IN 1 D), ORAL
     Route: 048
     Dates: start: 20060101
  2. LYRICA [Suspect]
     Indication: MYALGIA
     Dosage: 50 MG (50 MG,1 IN 1 D), ORAL
     Route: 048
     Dates: start: 20060101
  3. LYRICA [Suspect]
     Indication: SLEEP DISORDER
     Dosage: 50 MG (50 MG,1 IN 1 D), ORAL
     Route: 048
     Dates: start: 20060101
  4. MORPHINE [Concomitant]
  5. PERCOCET [Concomitant]
  6. SYNTHROID [Concomitant]
  7. LOPRESSOR [Concomitant]
  8. HYDRALAZINE HCL [Concomitant]
  9. XANAX [Concomitant]

REACTIONS (3)
  - SWELLING [None]
  - VISION BLURRED [None]
  - WEIGHT INCREASED [None]
